FAERS Safety Report 8665622 (Version 3)
Quarter: 2013Q4

REPORT INFORMATION
  Report Type: Spontaneous
  Country: US (occurrence: US)
  Receive Date: 20120716
  Receipt Date: 20131101
  Transmission Date: 20140711
  Serious: No
  Sender: FDA-Public Use
  Company Number: US-009507513-1207USA002685

PATIENT
  Sex: Male
  Weight: 93.42 kg

DRUGS (4)
  1. VICTRELIS [Suspect]
     Indication: HEPATITIS C
     Dosage: UNK UNK, UNKNOWN
     Dates: start: 201201
  2. PEGINTRON [Suspect]
     Dosage: 150 MICROGRAM, UNKNOWN
     Dates: start: 201112
  3. RIBASPHERE [Concomitant]
     Dosage: UNK UNK, UNKNOWN
     Dates: start: 201112
  4. PROCRIT [Concomitant]
     Dosage: UNK, UNKNOWN

REACTIONS (2)
  - Psoriasis [Unknown]
  - Rash [Unknown]
